FAERS Safety Report 5304490-1 (Version None)
Quarter: 2007Q2

REPORT INFORMATION
  Report Type: 
  Country: None (occurrence: None)
  Receive Date: 20070423
  Receipt Date: 20070412
  Transmission Date: 20071010
  Serious: Yes (Other)
  Sender: FDA-Public Use
  Company Number: GBWYE782226FEB07

PATIENT
  Sex: Male

DRUGS (4)
  1. ENBREL [Suspect]
     Indication: PSORIATIC ARTHROPATHY
     Route: 058
     Dates: start: 20060811
  2. FOLIC ACID [Concomitant]
     Indication: PSORIATIC ARTHROPATHY
  3. SALBUTAMOL [Concomitant]
     Dosage: 2 PUFF EVERY 1 PRN
  4. METHOTREXATE [Concomitant]
     Indication: PSORIATIC ARTHROPATHY
     Route: 048

REACTIONS (3)
  - ASTHMA [None]
  - CONDITION AGGRAVATED [None]
  - HEADACHE [None]
